FAERS Safety Report 24926316 (Version 1)
Quarter: 2025Q1

REPORT INFORMATION
  Report Type: Spontaneous
  Country: ID (occurrence: ID)
  Receive Date: 20250205
  Receipt Date: 20250205
  Transmission Date: 20250409
  Serious: Yes (Hospitalization, Other)
  Sender: GLAND PHARMA LTD
  Company Number: ID-GLANDPHARMA-ID-2025GLNLIT00179

PATIENT
  Age: 45 Year
  Sex: Male

DRUGS (6)
  1. GEMCITABINE [Suspect]
     Active Substance: GEMCITABINE
     Indication: Gallbladder adenocarcinoma
     Route: 065
  2. GEMCITABINE [Suspect]
     Active Substance: GEMCITABINE
     Indication: Metastases to liver
     Route: 065
  3. CAPECITABINE [Suspect]
     Active Substance: CAPECITABINE
     Indication: Gallbladder adenocarcinoma
     Dosage: I-A CYCLE, TOTAL OF 6 CYCLES EVERY 28 DAYS
     Route: 065
  4. CAPECITABINE [Suspect]
     Active Substance: CAPECITABINE
     Indication: Metastases to liver
     Route: 065
  5. AMLODIPINE [Concomitant]
     Active Substance: AMLODIPINE BESYLATE
     Indication: Hypertension
     Route: 065
  6. ATORVASTATIN [Concomitant]
     Active Substance: ATORVASTATIN
     Indication: Hypertension
     Dosage: EVERY NIGHT
     Route: 065

REACTIONS (2)
  - Deep vein thrombosis [Recovered/Resolved]
  - Product use in unapproved indication [Unknown]
